FAERS Safety Report 13941893 (Version 1)
Quarter: 2017Q3

REPORT INFORMATION
  Report Type: Spontaneous
  Country: US (occurrence: None)
  Receive Date: 20170905
  Receipt Date: 20170905
  Transmission Date: 20171127
  Serious: Yes (Hospitalization)
  Sender: FDA-Public Use
  Company Number: None

PATIENT
  Sex: Female
  Weight: 57.3 kg

DRUGS (1)
  1. MEMANTINE HYDROCHLORIDE. [Suspect]
     Active Substance: MEMANTINE HYDROCHLORIDE
     Dates: end: 20170824

REACTIONS (8)
  - Coordination abnormal [None]
  - Headache [None]
  - Metastases to central nervous system [None]
  - Fall [None]
  - Muscular weakness [None]
  - Disease progression [None]
  - Mental status changes [None]
  - Haemorrhage [None]

NARRATIVE: CASE EVENT DATE: 20170826
